FAERS Safety Report 25853451 (Version 1)
Quarter: 2025Q3

REPORT INFORMATION
  Report Type: Spontaneous
  Country: US (occurrence: US)
  Receive Date: 20250926
  Receipt Date: 20250926
  Transmission Date: 20251020
  Serious: Yes (Other)
  Sender: JOHNSON AND JOHNSON
  Company Number: US-JNJFOC-20250922295

PATIENT
  Age: 75 Year
  Sex: Male

DRUGS (1)
  1. CILTACABTAGENE AUTOLEUCEL [Suspect]
     Active Substance: CILTACABTAGENE AUTOLEUCEL
     Indication: Plasma cell myeloma
     Route: 065

REACTIONS (4)
  - Lymphocytosis [Recovered/Resolved]
  - Cytokine release syndrome [Recovered/Resolved]
  - Pneumonitis [Recovered/Resolved]
  - COVID-19 pneumonia [Recovered/Resolved]
